FAERS Safety Report 4994224-2 (Version None)
Quarter: 2006Q1

REPORT INFORMATION
  Report Type: 
  Country: None (occurrence: None)
  Receive Date: 20060313
  Receipt Date: 20051025
  Transmission Date: 20060701
  Serious: Yes (Other)
  Sender: FDA-Public Use
  Company Number: PHEH2005US11578

PATIENT
  Age: 46 Year
  Sex: Female

DRUGS (5)
  1. TRILEPTAL [Suspect]
     Indication: BIPOLAR I DISORDER
     Dosage: 300 MG, QD, ORAL
     Route: 048
     Dates: start: 20050803
  2. TRILEPTAL [Suspect]
     Dosage: 600 MG, QD, ORAL
     Route: 048
  3. TRILEPTAL [Suspect]
     Dosage: SEE IMAGE
     Route: 048
     Dates: start: 20050830, end: 20050927
  4. TRILEPTAL [Suspect]
     Dosage: SEE IMAGE
     Route: 048
     Dates: start: 20050927, end: 20051014
  5. EFFEXOR XR [Concomitant]

REACTIONS (7)
  - DRUG HYPERSENSITIVITY [None]
  - HEADACHE [None]
  - MIGRAINE [None]
  - PAIN [None]
  - SWELLING FACE [None]
  - TREMOR [None]
  - VOMITING [None]
